FAERS Safety Report 18025214 (Version 1)
Quarter: 2020Q3

REPORT INFORMATION
  Report Type: Spontaneous
  Country: AU (occurrence: AU)
  Receive Date: 20200715
  Receipt Date: 20200715
  Transmission Date: 20201103
  Serious: Yes (Other)
  Sender: FDA-Public Use
  Company Number: AU-PFIZER INC-2020268260

PATIENT
  Age: 58 Year
  Sex: Male

DRUGS (2)
  1. ERYTHROMYCIN. [Suspect]
     Active Substance: ERYTHROMYCIN
     Dosage: UNK
  2. CEFEPIME HCL [Suspect]
     Active Substance: CEFEPIME HYDROCHLORIDE
     Indication: PNEUMONIA
     Dosage: UNK

REACTIONS (4)
  - Acute kidney injury [Unknown]
  - Rhabdomyolysis [Unknown]
  - Eosinophil count increased [Unknown]
  - Blood creatinine increased [Unknown]

NARRATIVE: CASE EVENT DATE: 20200131
